FAERS Safety Report 5971492-1 (Version None)
Quarter: 2008Q4

REPORT INFORMATION
  Report Type: 
  Country: None (occurrence: None)
  Receive Date: 20081201
  Receipt Date: 20081124
  Transmission Date: 20090506
  Serious: Yes (Hospitalization)
  Sender: FDA-Public Use
  Company Number: FR-BRISTOL-MYERS SQUIBB COMPANY-14421267

PATIENT
  Age: 69 Year
  Sex: Male

DRUGS (10)
  1. IRBESARTAN [Suspect]
     Indication: HYPERTENSION
     Dosage: 1 DOSAGE FORM = 1 TABLET
     Route: 048
     Dates: start: 20080508
  2. FORLAX [Suspect]
     Dosage: 2 DOSAGE FORM = 2 SACHETS
     Route: 048
     Dates: start: 20080513
  3. NEXIUM [Suspect]
     Dosage: 1 DOSAGE FORM = 1 TABLET (40MG TAB)
     Route: 048
     Dates: start: 20080508
  4. MYOLASTAN [Suspect]
     Route: 048
     Dates: start: 20080508, end: 20080601
  5. ZOLPIDEM [Suspect]
     Dosage: 1 DOSAGE FORM = 1 TAB (10 MG TAB)
     Route: 048
     Dates: start: 20080508
  6. AERIUS [Concomitant]
     Dosage: 1 DOSAGE FORM = 1 TABLET
     Route: 048
     Dates: start: 20080529
  7. PROZAC [Concomitant]
     Indication: DEPRESSION
     Dosage: PROZAC 20 MG 2 DOSAGE FORM = 2 DISPERSIBLE TABLETS ONE IN THE MORNING AND ONE IN THE EVENING
     Route: 048
  8. AMLOD [Concomitant]
     Indication: HYPERTENSION
     Dosage: AMLOR 5 MG  1 DOSAGE FORM = 1 CAPSULE
     Route: 048
  9. DAFALGAN TABS 1 GM [Concomitant]
     Indication: PAIN
     Dosage: 1 DOSAGE FORM = 1-3TABLETS
     Route: 048
  10. RIVOTRIL [Concomitant]
     Indication: INSOMNIA
     Dosage: RIVOTRIL 2.5 MG/ML
     Route: 048

REACTIONS (1)
  - DERMATITIS EXFOLIATIVE [None]
